FAERS Safety Report 5071705-7 (Version None)
Quarter: 2006Q3

REPORT INFORMATION
  Report Type: 
  Country: None (occurrence: None)
  Receive Date: 20060804
  Receipt Date: 20060724
  Transmission Date: 20061208
  Serious: Yes (Disabling, Other)
  Sender: FDA-Public Use
  Company Number: PHNR2006AU00953

PATIENT
  Age: 62 Year
  Sex: Male

DRUGS (16)
  1. MELIZIDE [Concomitant]
  2. GLUCOHEXAL [Concomitant]
  3. FELODIPINE [Concomitant]
  4. ZOCOR [Concomitant]
  5. AVAPRO [Concomitant]
  6. ATENOLOL [Concomitant]
  7. SOLPRIN [Concomitant]
  8. ACIMAX [Concomitant]
  9. NAPROSYN - SLOW RELEASE [Concomitant]
  10. SLOW-K [Concomitant]
  11. FUROSEMIDE [Concomitant]
  12. NORMACOL [Concomitant]
  13. ESTROFEM [Concomitant]
  14. AMOXIL [Concomitant]
  15. ORDINE [Concomitant]
  16. ZOMETA [Suspect]

REACTIONS (6)
  - IMPAIRED HEALING [None]
  - OSTEONECROSIS [None]
  - TOOTH ABSCESS [None]
  - TOOTH EXTRACTION [None]
  - TOOTHACHE [None]
  - WOUND DEBRIDEMENT [None]
